FAERS Safety Report 21029248 (Version 1)
Quarter: 2022Q2

REPORT INFORMATION
  Report Type: Report from Study
  Country: FR (occurrence: FR)
  Receive Date: 20220630
  Receipt Date: 20220630
  Transmission Date: 20220721
  Serious: Yes (Death, Life-Threatening, Hospitalization, Other)
  Sender: FDA-Public Use
  Company Number: FR-TAKEDA-FR201820469

PATIENT
  Sex: Female
  Weight: 66 kg

DRUGS (8)
  1. TEDUGLUTIDE [Suspect]
     Active Substance: TEDUGLUTIDE
     Indication: Short-bowel syndrome
     Dosage: 3.3 MILLIGRAM, QD
     Route: 042
     Dates: start: 20160929
  2. TEDUGLUTIDE [Suspect]
     Active Substance: TEDUGLUTIDE
     Indication: Short-bowel syndrome
     Dosage: 3.3 MILLIGRAM, QD
     Route: 042
     Dates: start: 20160929
  3. TEDUGLUTIDE [Suspect]
     Active Substance: TEDUGLUTIDE
     Indication: Short-bowel syndrome
     Dosage: 3.3 MILLIGRAM, QD
     Route: 042
     Dates: start: 20160929
  4. TEDUGLUTIDE [Suspect]
     Active Substance: TEDUGLUTIDE
     Indication: Short-bowel syndrome
     Dosage: 3.3 MILLIGRAM, QD
     Route: 042
     Dates: start: 20160929
  5. VANCOMYCIN [Concomitant]
     Active Substance: VANCOMYCIN
     Indication: Antibiotic therapy
     Dosage: UNK
  6. MEROPENEM [Concomitant]
     Active Substance: MEROPENEM
     Indication: Antibiotic therapy
  7. NOREPINEPHRINE [Concomitant]
     Active Substance: NOREPINEPHRINE
     Indication: Vasopressive therapy
  8. DEXTROSE [Concomitant]
     Active Substance: DEXTROSE
     Indication: Energy increased

REACTIONS (2)
  - Spinal cord ischaemia [Fatal]
  - Paraplegia [Fatal]

NARRATIVE: CASE EVENT DATE: 20180328
